FAERS Safety Report 23422989 (Version 1)
Quarter: 2024Q1

REPORT INFORMATION
  Report Type: Spontaneous
  Country: CN (occurrence: CN)
  Receive Date: 20240119
  Receipt Date: 20240119
  Transmission Date: 20240410
  Serious: Yes (Other)
  Sender: FDA-Public Use
  Company Number: CN-MEITHEAL-2024MPLIT00005

PATIENT
  Age: 33 Year
  Sex: Female

DRUGS (6)
  1. METHYLPREDNISOLONE [Suspect]
     Active Substance: METHYLPREDNISOLONE
     Indication: Encephalitis autoimmune
     Route: 042
     Dates: start: 202208, end: 202208
  2. PREDNISONE [Suspect]
     Active Substance: PREDNISONE
     Indication: Encephalitis autoimmune
     Route: 048
     Dates: start: 202110
  3. PREDNISONE [Suspect]
     Active Substance: PREDNISONE
     Route: 048
     Dates: start: 202204
  4. GANCICLOVIR [Concomitant]
     Active Substance: GANCICLOVIR
     Route: 042
     Dates: start: 2021
  5. immunoglobulin [Concomitant]
     Route: 042
     Dates: start: 2021, end: 2021
  6. MYCOPHENOLIC ACID [Concomitant]
     Active Substance: MYCOPHENOLIC ACID
     Indication: Encephalitis autoimmune
     Route: 065
     Dates: start: 2022

REACTIONS (2)
  - Multiple sclerosis [Recovering/Resolving]
  - Steroid dependence [Unknown]

NARRATIVE: CASE EVENT DATE: 20220101
